FAERS Safety Report 11383121 (Version 1)
Quarter: 2015Q3

REPORT INFORMATION
  Report Type: Spontaneous
  Country: US (occurrence: US)
  Receive Date: 20150814
  Receipt Date: 20150814
  Transmission Date: 20151125
  Serious: No
  Sender: FDA-Public Use
  Company Number: US-VIVUS-2015V1000203

PATIENT
  Sex: Female

DRUGS (2)
  1. QSYMIA [Suspect]
     Active Substance: PHENTERMINE HYDROCHLORIDE\TOPIRAMATE
     Indication: PRODUCT USED FOR UNKNOWN INDICATION
     Route: 048
  2. QSYMIA [Suspect]
     Active Substance: PHENTERMINE HYDROCHLORIDE\TOPIRAMATE
     Indication: PRODUCT USED FOR UNKNOWN INDICATION
     Dosage: IN THE LAST 6 MONTHS
     Route: 048

REACTIONS (7)
  - Muscular weakness [Recovered/Resolved]
  - Memory impairment [Recovered/Resolved]
  - Nausea [Recovered/Resolved]
  - Eye pain [Recovered/Resolved]
  - Cognitive disorder [Recovered/Resolved]
  - Myalgia [Recovered/Resolved]
  - Dry eye [Recovered/Resolved]
